FAERS Safety Report 9381413 (Version 1)
Quarter: 2013Q3

REPORT INFORMATION
  Report Type: Spontaneous
  Country: IN (occurrence: IN)
  Receive Date: 20130703
  Receipt Date: 20130703
  Transmission Date: 20140515
  Serious: Yes (Other)
  Sender: FDA-Public Use
  Company Number: PHHY2013IN068570

PATIENT
  Sex: Female

DRUGS (1)
  1. TASIGNA [Suspect]
     Dosage: 200 MG, UNK
     Route: 048

REACTIONS (2)
  - Encephalopathy [Recovering/Resolving]
  - Paresis [Recovering/Resolving]
